FAERS Safety Report 8422072-X (Version None)
Quarter: 2012Q2

REPORT INFORMATION
  Report Type: 
  Country: None (occurrence: None)
  Receive Date: 20120608
  Receipt Date: 20120605
  Transmission Date: 20120825
  Serious: Yes (Other)
  Sender: FDA-Public Use
  Company Number: DE-PFIZER INC-2012134354

PATIENT
  Age: 62 Year
  Sex: Female
  Weight: 65 kg

DRUGS (1)
  1. CLINDAMYCIN HCL [Suspect]
     Indication: DENTAL CARE
     Dosage: 600 MG, 3X/DAY
     Route: 048
     Dates: start: 20111202, end: 20111212

REACTIONS (2)
  - PRURITUS GENERALISED [None]
  - FLUSHING [None]
